FAERS Safety Report 7973132-9 (Version None)
Quarter: 2011Q4

REPORT INFORMATION
  Report Type: 
  Country: None (occurrence: None)
  Receive Date: 20111213
  Receipt Date: 20111205
  Transmission Date: 20120403
  Serious: Yes (Hospitalization, Disabling, Other)
  Sender: FDA-Public Use
  Company Number: JP-ASTELLAS-2011JP007765

PATIENT
  Sex: Male
  Weight: 9 kg

DRUGS (10)
  1. METHOTREXATE [Concomitant]
     Indication: HISTIOCYTOSIS HAEMATOPHAGIC
  2. PROGRAF [Suspect]
     Indication: HISTIOCYTOSIS HAEMATOPHAGIC
  3. PROGRAF [Suspect]
     Dosage: UNK
     Route: 048
     Dates: start: 20090802, end: 20110819
  4. METHOTREXATE [Concomitant]
     Indication: PROPHYLAXIS AGAINST GRAFT VERSUS HOST DISEASE
     Dosage: 5.3 MG, UNKNOWN/D
     Route: 042
     Dates: start: 20090804, end: 20090809
  5. FRESH FROZEN PLASMA [Concomitant]
     Indication: VENOOCCLUSIVE DISEASE
     Dosage: UNK
     Route: 041
  6. LIMETHASON [Concomitant]
     Indication: HISTIOCYTOSIS HAEMATOPHAGIC
     Dosage: 2.5 MG, UNKNOWN/D
     Route: 042
     Dates: start: 20090317
  7. STEROID [Concomitant]
     Indication: VENOOCCLUSIVE DISEASE
     Route: 065
  8. CYCLOSPORINE [Concomitant]
     Indication: HISTIOCYTOSIS HAEMATOPHAGIC
     Dosage: 6 MG, UNKNOWN/D
     Route: 042
     Dates: start: 20090314
  9. PROGRAF [Suspect]
     Indication: PROPHYLAXIS AGAINST TRANSPLANT REJECTION
     Dosage: UNK
     Route: 065
     Dates: start: 20090802, end: 20110819
  10. PREDNISOLONE [Concomitant]
     Indication: HISTIOCYTOSIS HAEMATOPHAGIC
     Dosage: 5 MG, UNKNOWN/D
     Route: 048
     Dates: start: 20100407

REACTIONS (3)
  - ACUTE GRAFT VERSUS HOST DISEASE [None]
  - FOOD ALLERGY [None]
  - DRUG INEFFECTIVE [None]
